FAERS Safety Report 26213521 (Version 1)
Quarter: 2025Q4

REPORT INFORMATION
  Report Type: Spontaneous
  Country: EU (occurrence: EU)
  Receive Date: 20251230
  Receipt Date: 20251230
  Transmission Date: 20260118
  Serious: Yes (Other)
  Sender: PFIZER
  Company Number: EU-AUROBINDO-AUR-APL-2025-062247

PATIENT
  Age: 53 Year
  Sex: Female

DRUGS (7)
  1. LEVETIRACETAM [Suspect]
     Active Substance: LEVETIRACETAM
     Dosage: UNK
  2. DALFAMPRIDINE [Suspect]
     Active Substance: DALFAMPRIDINE
     Indication: Movement disorder
     Dosage: 10 MILLIGRAM, TWO TIMES A DAY
     Route: 048
  3. DALFAMPRIDINE [Suspect]
     Active Substance: DALFAMPRIDINE
     Dosage: 2 DOSAGE FORM IN  THE MORNING AND NINE IN THE AFTERNOON
     Route: 048
  4. PROPOFOL [Suspect]
     Active Substance: PROPOFOL
     Dosage: UNK
     Route: 065
  5. SIPONIMOD [Suspect]
     Active Substance: SIPONIMOD
     Dosage: UNK
     Route: 065
  6. BACLOFEN [Suspect]
     Active Substance: BACLOFEN
     Dosage: UNK
     Route: 065
  7. DEXMEDETOMIDINE [Suspect]
     Active Substance: DEXMEDETOMIDINE
     Dosage: UNK

REACTIONS (10)
  - Respiratory failure [Unknown]
  - Status epilepticus [Unknown]
  - Pneumonia aspiration [Unknown]
  - Confusional state [Unknown]
  - Aggression [Unknown]
  - Restless legs syndrome [Unknown]
  - Muscle twitching [Unknown]
  - Trismus [Unknown]
  - Foaming at mouth [Unknown]
  - Eye movement disorder [Unknown]
